FAERS Safety Report 11345840 (Version 5)
Quarter: 2016Q4

REPORT INFORMATION
  Report Type: Report from Study
  Country: DE (occurrence: DE)
  Receive Date: 20150806
  Receipt Date: 20161109
  Transmission Date: 20170206
  Serious: Yes (Hospitalization, Other)
  Sender: FDA-Public Use
  Company Number: PHHY2015DE092981

PATIENT
  Sex: Male
  Weight: 123 kg

DRUGS (1)
  1. TASIGNA [Suspect]
     Active Substance: NILOTINIB
     Indication: CHRONIC MYELOID LEUKAEMIA
     Dosage: 600 MG, QD
     Route: 065
     Dates: start: 20140311

REACTIONS (13)
  - Atrial flutter [Recovering/Resolving]
  - Blood pressure systolic increased [Unknown]
  - C-reactive protein increased [Unknown]
  - Specific gravity urine increased [Unknown]
  - Arrhythmia [Recovered/Resolved]
  - Ventricular extrasystoles [Unknown]
  - Syncope [Unknown]
  - White blood cell count increased [Unknown]
  - Blood glucose increased [Unknown]
  - Heart rate increased [Unknown]
  - Mitral valve incompetence [Unknown]
  - Atrial flutter [Recovered/Resolved]
  - Arrhythmia [Recovering/Resolving]

NARRATIVE: CASE EVENT DATE: 201501
